FAERS Safety Report 9960140 (Version 1)
Quarter: 2014Q1

REPORT INFORMATION
  Report Type: Spontaneous
  Country: PR (occurrence: PR)
  Receive Date: 20140305
  Receipt Date: 20140305
  Transmission Date: 20141002
  Serious: No
  Sender: FDA-Public Use
  Company Number: PR-ABBVIE-13P-131-1104590-00

PATIENT
  Age: 54 Year
  Sex: Female
  Weight: 81.72 kg

DRUGS (8)
  1. HUMIRA [Suspect]
     Indication: RHEUMATOID ARTHRITIS
     Route: 058
     Dates: start: 2010, end: 20130613
  2. ASMANEX [Concomitant]
     Indication: SINUSITIS
     Dosage: AT NIGHT
     Route: 055
  3. METHOTREXATE [Concomitant]
     Indication: RHEUMATOID ARTHRITIS
     Dosage: 6 TABLETS
     Route: 048
  4. PLAQUENIL [Concomitant]
     Indication: RHEUMATOID ARTHRITIS
  5. NEURONTIN [Concomitant]
     Indication: NEUROPATHIC ARTHROPATHY
     Route: 048
  6. BUDEPROIN [Concomitant]
     Indication: MAJOR DEPRESSION
     Route: 048
  7. ELAVIL [Concomitant]
     Indication: MAJOR DEPRESSION
     Route: 048
  8. VALIUM [Concomitant]
     Indication: INSOMNIA
     Route: 048

REACTIONS (2)
  - Oropharyngeal pain [Not Recovered/Not Resolved]
  - Unevaluable event [Not Recovered/Not Resolved]
